FAERS Safety Report 6354929-8 (Version None)
Quarter: 2009Q3

REPORT INFORMATION
  Report Type: 
  Country: None (occurrence: None)
  Receive Date: 20090914
  Receipt Date: 20090904
  Transmission Date: 20100115
  Serious: Yes (Other)
  Sender: FDA-Public Use
  Company Number: US-AVENTIS-200913679US

PATIENT
  Sex: Male
  Weight: 122.46 kg

DRUGS (25)
  1. LANTUS [Suspect]
     Indication: TYPE 2 DIABETES MELLITUS
     Route: 058
     Dates: start: 20090301, end: 20090101
  2. OXYGEN TENT [Concomitant]
     Dosage: DOSE: UNK
  3. WARFARIN SODIUM [Concomitant]
     Dosage: DOSE: UNK
  4. COREG [Concomitant]
     Dosage: DOSE: UNK
  5. LANOXIN [Concomitant]
     Dosage: DOSE: UNK
  6. KLOR-CON [Concomitant]
     Dosage: DOSE: UNK
  7. LASIX [Concomitant]
     Dosage: DOSE: UNK
  8. SYNTHROID [Concomitant]
     Dosage: DOSE: UNK
  9. GLIMEPIRIDE [Concomitant]
     Dosage: DOSE: UNK
  10. ENALAPRIL MALEATE [Concomitant]
     Dosage: DOSE: UNK
  11. ACTONEL [Concomitant]
     Dosage: DOSE: UNK
  12. SUPER B COMPLEX [Concomitant]
     Dosage: DOSE: UNK
  13. FLAXSEED OIL [Concomitant]
     Dosage: DOSE: UNK
  14. MAGNESIUM [Concomitant]
     Dosage: DOSE: UNK
  15. ESTER-C                            /00968001/ [Concomitant]
     Dosage: DOSE: UNK
  16. FOLIC ACID [Concomitant]
     Dosage: DOSE: UNK
  17. VIT B 12 [Concomitant]
     Dosage: DOSE: UNK
  18. VITAMIN B                          /90046501/ [Concomitant]
     Dosage: DOSE: UNK
  19. CO Q10 [Concomitant]
     Dosage: DOSE: UNK
  20. VITAMIN E CINNAMON [Concomitant]
     Dosage: DOSE: UNK
  21. CARNBERRY VITAMIN D [Concomitant]
     Dosage: DOSE: UNK
  22. CALCIUM W/MAGNESIUM [Concomitant]
     Dosage: DOSE: UNK
  23. ORAL ANTIDIABETICS [Concomitant]
     Dosage: DOSE: UNK
  24. AMIODARONE HCL [Concomitant]
     Dosage: DOSE: UNK
  25. TOPROL-XL [Concomitant]
     Dosage: DOSE: UNK

REACTIONS (4)
  - ATRIAL FIBRILLATION [None]
  - BLOOD GLUCOSE INCREASED [None]
  - CONDITION AGGRAVATED [None]
  - HEART RATE INCREASED [None]
